FAERS Safety Report 12504825 (Version 1)
Quarter: 2016Q2

REPORT INFORMATION
  Report Type: Spontaneous
  Country: DE (occurrence: DE)
  Receive Date: 20160628
  Receipt Date: 20160628
  Transmission Date: 20160815
  Serious: Yes (Other)
  Sender: FDA-Public Use
  Company Number: DE-BAYER-2016-118454

PATIENT
  Age: 78 Year
  Sex: Female

DRUGS (1)
  1. ACETYLSALICYLIC ACID({=100 MG) [Suspect]
     Active Substance: ASPIRIN
     Indication: ATRIAL FIBRILLATION

REACTIONS (4)
  - Electrocardiogram T wave inversion [None]
  - Stress cardiomyopathy [None]
  - Bundle branch block left [None]
  - Drug ineffective [None]
